FAERS Safety Report 9306386 (Version 2)
Quarter: 2013Q3

REPORT INFORMATION
  Report Type: Spontaneous
  Country: US (occurrence: US)
  Receive Date: 20130523
  Receipt Date: 20130702
  Transmission Date: 20140515
  Serious: Yes (Hospitalization)
  Sender: FDA-Public Use
  Company Number: US-BAYER-2013-063722

PATIENT
  Age: 25 Year
  Sex: Female

DRUGS (4)
  1. YASMIN [Suspect]
  2. YAZ [Suspect]
  3. OCELLA [Suspect]
  4. GIANVI [Suspect]
     Dosage: UNK

REACTIONS (6)
  - Intracranial venous sinus thrombosis [None]
  - Cerebrovascular accident [None]
  - Injury [None]
  - Pain [None]
  - Emotional distress [None]
  - Pain [None]
